FAERS Safety Report 14157902 (Version 6)
Quarter: 2017Q4

REPORT INFORMATION
  Report Type: Spontaneous
  Country: JP (occurrence: JP)
  Receive Date: 20171105
  Receipt Date: 20171120
  Transmission Date: 20180321
  Serious: Yes (Life-Threatening, Other)
  Sender: FDA-Public Use
  Company Number: JP-CONCORDIA PHARMACEUTICALS INC.-GSH201711-006256

PATIENT
  Age: 71 Year
  Sex: Female

DRUGS (6)
  1. PREDNISOLONE. [Suspect]
     Active Substance: PREDNISOLONE
     Indication: STILL^S DISEASE
     Dosage: 1 MG/KG BODY WEIGHT, ON HOSPITAL DAY (HD) 4
     Route: 048
  2. PREDNISOLONE. [Suspect]
     Active Substance: PREDNISOLONE
     Dosage: A MAINTENANCE DOSE
     Route: 048
  3. TOCILIZUMAB. [Concomitant]
     Active Substance: TOCILIZUMAB
     Dosage: SECOND DOSE OF TCZ, ON HD 62
  4. TOCILIZUMAB. [Concomitant]
     Active Substance: TOCILIZUMAB
     Indication: HISTIOCYTOSIS HAEMATOPHAGIC
     Dosage: 8 MG/KG BW, ON HD 29
     Route: 042
  5. METHYLPREDNISOLONE. [Suspect]
     Active Substance: METHYLPREDNISOLONE
     Indication: STILL^S DISEASE
     Dosage: STARTING ON HD (HOSPITAL DAY) 16
     Route: 042
  6. METHYLPREDNISOLONE. [Suspect]
     Active Substance: METHYLPREDNISOLONE
     Dosage: LOW-DOSE

REACTIONS (6)
  - Pneumocystis jirovecii pneumonia [Recovered/Resolved]
  - Disseminated intravascular coagulation [Recovered/Resolved]
  - Pancytopenia [Recovered/Resolved]
  - Cytomegalovirus infection [Recovered/Resolved]
  - Histiocytosis haematophagic [Recovered/Resolved]
  - Drug ineffective [Unknown]
